FAERS Safety Report 12614161 (Version 1)
Quarter: 2016Q3

REPORT INFORMATION
  Report Type: Spontaneous
  Country: FR (occurrence: FR)
  Receive Date: 20160802
  Receipt Date: 20160802
  Transmission Date: 20161109
  Serious: Yes (Hospitalization)
  Sender: FDA-Public Use
  Company Number: FR-PFIZER INC-2016362022

PATIENT
  Age: 36 Year
  Sex: Male

DRUGS (3)
  1. TERCIAN /00759301/ [Suspect]
     Active Substance: CYAMEMAZINE
     Dosage: 14 DF OF 25 MG, SINGLE
     Route: 048
     Dates: start: 20160602, end: 20160602
  2. XANAX [Suspect]
     Active Substance: ALPRAZOLAM
     Dosage: 10 DF OF 0.50 MG, SINGLE
     Route: 048
     Dates: start: 20160602, end: 20160602
  3. ZOLPIDEM [Suspect]
     Active Substance: ZOLPIDEM\ZOLPIDEM TARTRATE
     Dosage: 10 DF OF 10 MG, SINGLE
     Route: 048
     Dates: start: 20160602, end: 20160602

REACTIONS (3)
  - Toxicity to various agents [Recovered/Resolved]
  - Suicide attempt [Unknown]
  - Tachycardia [Unknown]

NARRATIVE: CASE EVENT DATE: 20160602
